FAERS Safety Report 4841211-0 (Version None)
Quarter: 2005Q4

REPORT INFORMATION
  Report Type: 
  Country: None (occurrence: None)
  Receive Date: 20051130
  Receipt Date: 20031128
  Transmission Date: 20060501
  Serious: Yes (Hospitalization)
  Sender: FDA-Public Use
  Company Number: GB-ABBOTT-03P-167-0242568-00

PATIENT
  Sex: Female
  Weight: 61 kg

DRUGS (9)
  1. HUMIRA [Suspect]
     Indication: RHEUMATOID ARTHRITIS
     Route: 058
     Dates: start: 20030320, end: 20031001
  2. METHOTREXATE SODIUM [Concomitant]
  3. CALCIUM CARBONATE [Concomitant]
  4. NAPROXEN [Concomitant]
  5. ACETAMINOPHEN W/ CODEINE [Concomitant]
  6. FOLIC ACID [Concomitant]
  7. TIBOLONE [Concomitant]
  8. LOSARTAN POTASSIUM [Concomitant]
  9. EYE DROPS [Concomitant]

REACTIONS (4)
  - CHOLESTASIS [None]
  - LYMPHADENOPATHY [None]
  - PYREXIA [None]
  - RASH GENERALISED [None]
